FAERS Safety Report 16124008 (Version 1)
Quarter: 2019Q1

REPORT INFORMATION
  Report Type: Spontaneous
  Country: FR (occurrence: FR)
  Receive Date: 20190327
  Receipt Date: 20190327
  Transmission Date: 20190418
  Serious: Yes (Life-Threatening, Hospitalization, Other)
  Sender: FDA-Public Use
  Company Number: FR-PFIZER INC-2019123612

PATIENT
  Age: 17 Year
  Sex: Male

DRUGS (4)
  1. VINCRISTINE HOSPIRA [Suspect]
     Active Substance: VINCRISTINE
     Indication: EWING^S SARCOMA
     Dosage: 2 MG, CYCLIC
     Route: 041
     Dates: start: 20180130, end: 201806
  2. DOXORUBICINE ACCORD [Suspect]
     Active Substance: DOXORUBICIN
     Indication: EWING^S SARCOMA
     Dosage: 34 MG, UNK
     Route: 041
     Dates: start: 20180130, end: 201806
  3. IFOSFAMIDE EG [Suspect]
     Active Substance: IFOSFAMIDE
     Indication: EWING^S SARCOMA
     Dosage: 5000 MG, CYCLIC
     Route: 041
     Dates: start: 20180130, end: 201806
  4. ETOPOSIDE MYLAN [Suspect]
     Active Substance: ETOPOSIDE
     Indication: EWING^S SARCOMA
     Dosage: 260 MG, UNK
     Route: 041
     Dates: start: 20180130, end: 201806

REACTIONS (3)
  - Mucosal inflammation [Recovered/Resolved]
  - Febrile bone marrow aplasia [Recovered/Resolved]
  - Clostridial sepsis [Recovered/Resolved]

NARRATIVE: CASE EVENT DATE: 201802
